FAERS Safety Report 23576688 (Version 5)
Quarter: 2025Q2

REPORT INFORMATION
  Report Type: Spontaneous
  Country: US (occurrence: US)
  Receive Date: 20240228
  Receipt Date: 20250519
  Transmission Date: 20250716
  Serious: Yes (Other)
  Sender: PFIZER
  Company Number: US-PFIZER INC-PV202400027553

PATIENT
  Age: 71 Year
  Sex: Female

DRUGS (1)
  1. XELJANZ XR [Suspect]
     Active Substance: TOFACITINIB CITRATE

REACTIONS (7)
  - Visual impairment [Unknown]
  - Pelvic fracture [Unknown]
  - Fall [Unknown]
  - Memory impairment [Unknown]
  - Confusional state [Unknown]
  - General physical health deterioration [Not Recovered/Not Resolved]
  - Intentional product misuse [Unknown]
